FAERS Safety Report 8593895-1 (Version None)
Quarter: 2012Q3

REPORT INFORMATION
  Report Type: 
  Country: None (occurrence: None)
  Receive Date: 20120803
  Receipt Date: 20120803
  Transmission Date: 20120928
  Serious: Yes (Hospitalization)
  Sender: FDA-Public Use
  Company Number: None

PATIENT
  Sex: Female

DRUGS (1)
  1. XELODA [Suspect]
     Indication: ANAL CANCER
     Dosage: 500MCG 1BID MON-FRI PO
     Route: 048
     Dates: start: 20120608, end: 20120705

REACTIONS (3)
  - UPPER LIMB FRACTURE [None]
  - HIP FRACTURE [None]
  - FALL [None]
